FAERS Safety Report 9379895 (Version 1)
Quarter: 2013Q3

REPORT INFORMATION
  Report Type: Spontaneous
  Country: US (occurrence: US)
  Receive Date: 20130702
  Receipt Date: 20130702
  Transmission Date: 20140515
  Serious: No
  Sender: FDA-Public Use
  Company Number: US-BAYER-2013-081032

PATIENT
  Age: 43 Year
  Sex: Female
  Weight: 52 kg

DRUGS (4)
  1. ALEVE CAPLET [Suspect]
     Indication: PAIN
     Dosage: 1 DF, ONCE
     Route: 048
     Dates: start: 20130619, end: 20130619
  2. ONE-A-DAY [MINERALS NOS,VITAMINS NOS] [Concomitant]
  3. VITAMIN C [Concomitant]
  4. BIOTIN [Concomitant]

REACTIONS (2)
  - Somnolence [Recovered/Resolved]
  - Headache [Recovered/Resolved]
